FAERS Safety Report 6218879-X (Version None)
Quarter: 2009Q2

REPORT INFORMATION
  Report Type: 
  Country: None (occurrence: None)
  Receive Date: 20090608
  Receipt Date: 20090525
  Transmission Date: 20091009
  Serious: Yes (Hospitalization)
  Sender: FDA-Public Use
  Company Number: SE-ELI_LILLY_AND_COMPANY-SE200906000647

PATIENT
  Age: 49 Year
  Sex: Male

DRUGS (6)
  1. CYMBALTA [Suspect]
     Indication: DEPRESSION
     Dosage: 60 MG, DAILY (1/D)
     Route: 048
     Dates: start: 20080101
  2. COAPROVEL [Concomitant]
     Dosage: UNK, UNKNOWN 125MG/12.5MG
     Route: 065
  3. AMLODIPIN /00972401/ [Concomitant]
     Dosage: 5 MG, UNKNOWN
     Route: 065
  4. ACETAMINOPHEN W/ CODEINE [Concomitant]
     Dosage: UNK, UNKNOWN 500MG/30MG
     Route: 065
  5. SOTALOL HCL [Concomitant]
     Dosage: 80 MG, UNKNOWN
     Route: 065
  6. TROMBYL [Concomitant]
     Dosage: 75 MG, UNKNOWN
     Route: 065

REACTIONS (5)
  - AURICULAR SWELLING [None]
  - DIZZINESS [None]
  - HEADACHE [None]
  - NASAL POLYPS [None]
  - PETIT MAL EPILEPSY [None]
